FAERS Safety Report 26051933 (Version 1)
Quarter: 2025Q4

REPORT INFORMATION
  Report Type: Other
  Country: RU (occurrence: RU)
  Receive Date: 20251117
  Receipt Date: 20251117
  Transmission Date: 20260117
  Serious: Yes (Other)
  Sender: ANI
  Company Number: RU-ANIPHARMA-031129

PATIENT
  Age: 39 Year
  Sex: Female

DRUGS (7)
  1. ANASTROZOLE [Suspect]
     Active Substance: ANASTROZOLE
     Indication: Invasive breast carcinoma
     Dates: start: 202310
  2. TAMOXIFEN [Concomitant]
     Active Substance: TAMOXIFEN
     Indication: Invasive breast carcinoma
     Dosage: ENDOCRINE THERAPY
     Dates: start: 202302
  3. GOSERELIN [Concomitant]
     Active Substance: GOSERELIN
     Indication: Invasive breast carcinoma
     Dates: start: 202302
  4. RIBOCICLIB [Concomitant]
     Active Substance: RIBOCICLIB
     Indication: Invasive breast carcinoma
     Dosage: ON DAYS 1-21 OF A 21-DAY CYCLE
     Dates: start: 202310
  5. DOCETAXEL [Concomitant]
     Active Substance: DOCETAXEL
     Indication: Invasive breast carcinoma
  6. BEVACIZUMAB [Concomitant]
     Active Substance: BEVACIZUMAB
     Indication: Invasive breast carcinoma
  7. CAPECITABINE [Concomitant]
     Active Substance: CAPECITABINE
     Indication: Invasive breast carcinoma
     Dosage: ON DAYS 1-14 OF A 21-DAY CYCLE

REACTIONS (2)
  - Malignant neoplasm progression [Unknown]
  - Drug resistance [Unknown]
